FAERS Safety Report 21160636 (Version 1)
Quarter: 2022Q3

REPORT INFORMATION
  Report Type: Spontaneous
  Country: US (occurrence: None)
  Receive Date: 20220801
  Receipt Date: 20220801
  Transmission Date: 20221027
  Serious: Yes (unspecified)
  Sender: FDA-Public Use
  Company Number: None

PATIENT
  Age: 38 Year
  Sex: Female
  Weight: 74.25 kg

DRUGS (3)
  1. WIXELA INHUB [Suspect]
     Active Substance: FLUTICASONE PROPIONATE\SALMETEROL XINAFOATE
     Indication: Asthma
     Dosage: OTHER STRENGTH : 500/50;?OTHER QUANTITY : 1 INHALATION(S);?FREQUENCY : TWICE A DAY;?
     Route: 055
     Dates: start: 20220715, end: 20220801
  2. ALBUTEROL [Concomitant]
     Active Substance: ALBUTEROL
  3. ADVAIR HFA [Concomitant]
     Active Substance: FLUTICASONE PROPIONATE\SALMETEROL XINAFOATE

REACTIONS (4)
  - Dyspnoea [None]
  - Dysphonia [None]
  - Lethargy [None]
  - Speech disorder [None]

NARRATIVE: CASE EVENT DATE: 20220722
